FAERS Safety Report 9199138 (Version 6)
Quarter: 2014Q1

REPORT INFORMATION
  Report Type: Spontaneous
  Country: US (occurrence: US)
  Receive Date: 20130329
  Receipt Date: 20140213
  Transmission Date: 20141002
  Serious: No
  Sender: FDA-Public Use
  Company Number: US-PFIZER INC-2013102291

PATIENT
  Age: 61 Year
  Sex: Female
  Weight: 92.52 kg

DRUGS (18)
  1. LYRICA [Suspect]
     Indication: FIBROMYALGIA
     Dosage: 200 MG, 2X/DAY
     Route: 048
     Dates: end: 201303
  2. PAXIL [Concomitant]
     Dosage: 40 MG, 1X/DAY (QHS)
     Route: 048
  3. ACETAMINOPHEN/TRAMADOL HYDROCHLORIDE [Concomitant]
     Dosage: 1 DF, 4-6 HOURS AS NEEDED (ACETAMINOPHEN 325 MG/TRAMADOL 37.5 MG)
     Route: 048
  4. CALCIUM CARBONATE [Concomitant]
     Dosage: 600 MG, DAILY (300 MG 2 TABS DAILY)
  5. CARAFATE [Concomitant]
     Dosage: 1 G (PRIOR TO MEALS ), 3X/DAY (2 WEEKS)
     Route: 048
  6. COLACE [Concomitant]
     Dosage: 100 MG, 1X/DAY
     Route: 048
  7. COUMADIN [Concomitant]
     Dosage: 4 MG, 1X/DAY (AS DIRECTED)
     Route: 048
  8. COUMADIN [Concomitant]
     Dosage: 5 MG, 1X/DAY (OR AS DIRECTED)
     Route: 048
  9. FISH OIL [Concomitant]
     Dosage: 2000 MG, DAILY (1000 MG 2 TABLETS DAILY)
     Route: 048
  10. IMDUR [Concomitant]
     Dosage: 30 MG, 1X/DAY
     Route: 048
  11. LIDODERM [Concomitant]
     Dosage: 1 PATCH EVERY 12 HR
     Route: 062
  12. LISINOPRIL [Concomitant]
     Dosage: 20 MG, 1X/DAY
     Route: 048
  13. MAGNESIUM OXIDE [Concomitant]
     Dosage: 400 MG, UNK
     Route: 048
  14. OMEPRAZOLE [Concomitant]
     Dosage: 20 MG, 2X/DAY
     Route: 048
  15. TOPAMAX [Concomitant]
     Dosage: 50 MG, 2X/DAY
     Route: 048
  16. VITAMIN B12 [Concomitant]
     Dosage: UNK (PERRY 2 WEEKS)
  17. VITAMIN C [Concomitant]
     Dosage: 500 MG, 3X/DAY
     Route: 048
  18. VITAMIN D [Concomitant]
     Dosage: 50000 IU, (ONCE MONTHLY)

REACTIONS (4)
  - Hyperhidrosis [Not Recovered/Not Resolved]
  - Malaise [Not Recovered/Not Resolved]
  - Withdrawal syndrome [Unknown]
  - Pain in extremity [Unknown]
